FAERS Safety Report 11213318 (Version 1)
Quarter: 2015Q2

REPORT INFORMATION
  Report Type: Spontaneous
  Country: CN (occurrence: CN)
  Receive Date: 20150623
  Receipt Date: 20150623
  Transmission Date: 20150821
  Serious: Yes (Other)
  Sender: FDA-Public Use
  Company Number: CN-BAYER-2015-353727

PATIENT
  Sex: Male

DRUGS (1)
  1. GLUCOBAY [Suspect]
     Active Substance: ACARBOSE
     Indication: BLOOD GLUCOSE INCREASED
     Dosage: UNK
     Dates: start: 201506

REACTIONS (2)
  - Diabetes mellitus inadequate control [None]
  - Drug ineffective [None]
